FAERS Safety Report 24063501 (Version 1)
Quarter: 2024Q3

REPORT INFORMATION
  Report Type: Spontaneous
  Country: ES (occurrence: ES)
  Receive Date: 20240709
  Receipt Date: 20240709
  Transmission Date: 20241017
  Serious: Yes (Hospitalization, Other)
  Sender: CHEPLAPHARM
  Company Number: ES-CHEPLA-2024008381

PATIENT
  Age: 46 Year
  Sex: Male

DRUGS (11)
  1. GANCICLOVIR [Suspect]
     Active Substance: GANCICLOVIR
     Indication: Cytomegalovirus infection
     Dosage: 50 MG/KG/ 12 HOUR
  2. VALGANCICLOVIR [Suspect]
     Active Substance: VALGANCICLOVIR
     Indication: Antiviral prophylaxis
     Dosage: ORAL VALGANCICLOVIR 900 MG/12 H?FOR 18 DAYS TO CONTROL CMV VIREMIA
     Route: 048
  3. VALGANCICLOVIR [Suspect]
     Active Substance: VALGANCICLOVIR
     Indication: Antiviral prophylaxis
     Dosage: 450 MG / 2 TABLETS / DAY
  4. DELAFLOXACIN [Concomitant]
     Active Substance: DELAFLOXACIN
     Indication: Campylobacter infection
  5. PYLERA [Concomitant]
     Active Substance: BISMUTH SUBCITRATE POTASSIUM\METRONIDAZOLE\TETRACYCLINE HYDROCHLORIDE
     Indication: Helicobacter infection
     Dosage: 3 CAPSULES EVERY 6 HOURS
  6. FIDAXOMICIN [Concomitant]
     Active Substance: FIDAXOMICIN
     Dosage: 200 MG / 12 HOURS FOR 5 DAYS
  7. FIDAXOMICIN [Concomitant]
     Active Substance: FIDAXOMICIN
     Dosage: 200 MG / 48 HOURS FOR 20 DAYS
  8. BEZLOTOXUMAB [Concomitant]
     Active Substance: BEZLOTOXUMAB
     Dosage: 650 MG SINGLE DOSE
     Route: 042
  9. PREDNISONE [Concomitant]
     Active Substance: PREDNISONE
     Indication: Autoimmune haemolytic anaemia
     Dosage: 100 MG / DAY
     Route: 048
  10. ceftacidime / avibactam [Concomitant]
     Indication: Klebsiella infection
  11. CEFTRIAXONE [Concomitant]
     Active Substance: CEFTRIAXONE\CEFTRIAXONE SODIUM
     Indication: Klebsiella infection
     Dosage: 2 G
     Route: 042

REACTIONS (5)
  - Drug ineffective [Unknown]
  - Adenocarcinoma gastric [Recovered/Resolved]
  - Cytomegalovirus gastrointestinal infection [Unknown]
  - Cytomegalovirus viraemia [Recovering/Resolving]
  - Neutrophilia [Unknown]

NARRATIVE: CASE EVENT DATE: 20221201
